FAERS Safety Report 8652475 (Version 4)
Quarter: 2013Q1

REPORT INFORMATION
  Report Type: Spontaneous
  Country: CA (occurrence: CA)
  Receive Date: 20120706
  Receipt Date: 20130326
  Transmission Date: 20140127
  Serious: Yes (Death, Other)
  Sender: FDA-Public Use
  Company Number: CA-ROCHE-1084037

PATIENT
  Sex: Male

DRUGS (5)
  1. XOLAIR [Suspect]
     Indication: ASTHMA
     Route: 058
     Dates: start: 20111019, end: 20121220
  2. ADVAIR [Concomitant]
  3. VENTOLINE [Concomitant]
  4. ATROVENT [Concomitant]
  5. SINGULAIR [Concomitant]

REACTIONS (8)
  - Death [Fatal]
  - Tibia fracture [Unknown]
  - Asthma [Unknown]
  - Nasopharyngitis [Unknown]
  - Oropharyngeal pain [Unknown]
  - Cough [Unknown]
  - Rhinorrhoea [Unknown]
  - Increased upper airway secretion [Unknown]
